FAERS Safety Report 24114756 (Version 1)
Quarter: 2024Q3

REPORT INFORMATION
  Report Type: Spontaneous
  Country: PL (occurrence: PL)
  Receive Date: 20240721
  Receipt Date: 20240721
  Transmission Date: 20241017
  Serious: Yes (Death, Life-Threatening, Hospitalization)
  Sender: STRIDES
  Company Number: None

PATIENT
  Age: 66 Year
  Sex: Female

DRUGS (3)
  1. PREDNISOLONE [Suspect]
     Active Substance: PREDNISOLONE
     Indication: Tolosa-Hunt syndrome
     Dosage: 60 MILLIGRAM, QD, GRADUALLY DECREASING DOSES
     Route: 065
  2. METHYLPREDNISOLONE [Suspect]
     Active Substance: METHYLPREDNISOLONE
     Indication: Tolosa-Hunt syndrome
     Dosage: 1000 MILLIGRAM, QD
     Route: 042
  3. METHYLPREDNISOLONE [Suspect]
     Active Substance: METHYLPREDNISOLONE
     Dosage: 0.5 GRAM, REDUCED DOSES DUE TO DM
     Route: 065

REACTIONS (5)
  - Condition aggravated [Fatal]
  - Staphylococcal sepsis [Fatal]
  - Respiratory failure [Fatal]
  - Abscess neck [Fatal]
  - Circulatory collapse [Fatal]
